FAERS Safety Report 25443419 (Version 3)
Quarter: 2025Q4

REPORT INFORMATION
  Report Type: Report from Study
  Country: US (occurrence: US)
  Receive Date: 20250617
  Receipt Date: 20251210
  Transmission Date: 20260117
  Serious: Yes (Hospitalization)
  Sender: ABBVIE
  Company Number: US-ABBVIE-6209983

PATIENT
  Age: 61 Year
  Sex: Male

DRUGS (3)
  1. IMBRUVICA [Suspect]
     Active Substance: IBRUTINIB
     Indication: Waldenstrom^s macroglobulinaemia
     Route: 048
     Dates: start: 202306
  2. IMBRUVICA [Suspect]
     Active Substance: IBRUTINIB
     Indication: Waldenstrom^s macroglobulinaemia
     Route: 048
  3. IMBRUVICA [Suspect]
     Active Substance: IBRUTINIB
     Indication: Waldenstrom^s macroglobulinaemia
     Dosage: DRUG START DATE: JUN 2023
     Route: 048

REACTIONS (11)
  - Blood sodium decreased [Unknown]
  - Compression fracture [Unknown]
  - Gait disturbance [Unknown]
  - Inguinal hernia [Unknown]
  - Chronic obstructive pulmonary disease [Unknown]
  - Asthma [Unknown]
  - Dyspnoea [Unknown]
  - Pneumonia [Unknown]
  - Cardiac dysfunction [Unknown]
  - Vision blurred [Unknown]
  - Contusion [Unknown]

NARRATIVE: CASE EVENT DATE: 20251113
